FAERS Safety Report 6285029-3 (Version None)
Quarter: 2009Q3

REPORT INFORMATION
  Report Type: 
  Country: None (occurrence: None)
  Receive Date: 20090727
  Receipt Date: 20090716
  Transmission Date: 20100115
  Serious: Yes (Hospitalization, Other)
  Sender: FDA-Public Use
  Company Number: PL-VALEANT-PL-URPL-OCR-20090717011

PATIENT
  Age: 73 Year
  Sex: Female
  Weight: 40 kg

DRUGS (4)
  1. MESTINON [Suspect]
     Indication: THYMOMA
     Route: 048
     Dates: start: 20090701, end: 20090709
  2. HELICID [Concomitant]
     Route: 065
  3. TRAMADOL HCL [Concomitant]
     Route: 065
  4. STAVERAN [Concomitant]
     Route: 065

REACTIONS (3)
  - ABDOMINAL PAIN [None]
  - DIARRHOEA [None]
  - DYSPNOEA [None]
